FAERS Safety Report 7867122-4 (Version None)
Quarter: 2011Q4

REPORT INFORMATION
  Report Type: 
  Country: None (occurrence: None)
  Receive Date: 20111028
  Receipt Date: 20111018
  Transmission Date: 20120403
  Serious: Yes (Death, Other)
  Sender: FDA-Public Use
  Company Number: FR-BRISTOL-MYERS SQUIBB COMPANY-16176455

PATIENT
  Age: 89 Year
  Sex: Male

DRUGS (5)
  1. XYZAL [Concomitant]
     Dosage: TABS
  2. ALLOPURINOL [Concomitant]
  3. SPRYCEL [Suspect]
     Indication: CHRONIC MYELOID LEUKAEMIA
     Route: 048
     Dates: start: 20110629, end: 20110801
  4. CORDARONE [Concomitant]
     Dosage: TABS
  5. RAMIPRIL [Concomitant]

REACTIONS (2)
  - CARDIAC FAILURE [None]
  - PULMONARY ARTERIAL HYPERTENSION [None]
